FAERS Safety Report 19607160 (Version 1)
Quarter: 2021Q3

REPORT INFORMATION
  Report Type: Spontaneous
  Country: JP (occurrence: JP)
  Receive Date: 20210726
  Receipt Date: 20210726
  Transmission Date: 20211014
  Serious: Yes (Hospitalization, Other)
  Sender: FDA-Public Use
  Company Number: JP-SUN PHARMACEUTICAL INDUSTRIES LTD-2021RR-305049

PATIENT
  Age: 29 Year
  Sex: Female
  Weight: 48 kg

DRUGS (2)
  1. LETROZOLE. [Suspect]
     Active Substance: LETROZOLE
     Indication: BREAST CANCER
     Dosage: 5 MILLIGRAM, DAILY
     Route: 065
  2. FSH [Concomitant]
     Active Substance: FOLLITROPIN
     Indication: BREAST CANCER
     Dosage: 225 INTERNATIONAL UNIT, DAILY
     Route: 065

REACTIONS (3)
  - Ovarian rupture [Unknown]
  - Haemoperitoneum [Recovering/Resolving]
  - Ovarian haemorrhage [Unknown]
